FAERS Safety Report 17079312 (Version 2)
Quarter: 2020Q2

REPORT INFORMATION
  Report Type: Spontaneous
  Country: US (occurrence: US)
  Receive Date: 20191127
  Receipt Date: 20200526
  Transmission Date: 20200713
  Serious: No
  Sender: FDA-Public Use
  Company Number: US-UCBSA-2019008732

PATIENT

DRUGS (1)
  1. CIMZIA [Suspect]
     Active Substance: CERTOLIZUMAB PEGOL
     Indication: PRODUCT USED FOR UNKNOWN INDICATION
     Dosage: UNK
     Dates: start: 20190221

REACTIONS (5)
  - Dizziness [Unknown]
  - Malaise [Unknown]
  - Hypoaesthesia oral [Recovered/Resolved]
  - Blood pressure increased [Recovered/Resolved]
  - Sensory loss [Unknown]

NARRATIVE: CASE EVENT DATE: 201902
